FAERS Safety Report 4687400-X (Version None)
Quarter: 2005Q2

REPORT INFORMATION
  Report Type: 
  Country: None (occurrence: None)
  Receive Date: 20050608
  Receipt Date: 20050527
  Transmission Date: 20051028
  Serious: Yes (Disabling)
  Sender: FDA-Public Use
  Company Number: 001-0981-M0009473

PATIENT
  Sex: Female
  Weight: 72.5755 kg

DRUGS (4)
  1. LIPITOR [Suspect]
     Indication: BLOOD CHOLESTEROL INCREASED
     Dosage: 40 MG (1 D), ORAL
     Route: 048
     Dates: start: 19980101
  2. PRILOSEC [Concomitant]
  3. ATENOLOL [Concomitant]
  4. SYNTHROID [Concomitant]

REACTIONS (5)
  - ACTIVITIES OF DAILY LIVING IMPAIRED [None]
  - BLOOD CHOLESTEROL INCREASED [None]
  - HYPOTRICHOSIS [None]
  - MUSCLE DISORDER [None]
  - PAIN IN EXTREMITY [None]
